FAERS Safety Report 7606290-6 (Version None)
Quarter: 2011Q3

REPORT INFORMATION
  Report Type: 
  Country: None (occurrence: None)
  Receive Date: 20110713
  Receipt Date: 20110629
  Transmission Date: 20111222
  Serious: Yes (Hospitalization, Other)
  Sender: FDA-Public Use
  Company Number: US-BAYER-201031523NA

PATIENT
  Age: 42 Year
  Sex: Female
  Weight: 59 kg

DRUGS (12)
  1. YAZ [Suspect]
     Indication: CONTRACEPTION
     Dosage: UNK
     Route: 048
     Dates: start: 20010101, end: 20070101
  2. ADVAIR DISKUS 100/50 [Concomitant]
  3. CITALOPRAM HYDROBROMIDE [Concomitant]
     Indication: ANXIETY
     Dosage: UNK
     Dates: start: 20060101
  4. YASMIN [Suspect]
     Indication: CONTRACEPTION
     Dosage: UNK
     Dates: start: 20010101, end: 20070101
  5. HYDROCHLOROTHIAZIDE [Concomitant]
  6. ALBUTEROL SULFATE AUTOHALER [Concomitant]
  7. LISINOPRIL [Concomitant]
  8. LORAZEPAM [Concomitant]
  9. YAZ [Suspect]
     Indication: OVARIAN CYST
  10. YASMIN [Suspect]
     Indication: OVARIAN CYST
  11. NSAID'S [Concomitant]
     Dosage: UNK UNK, PRN
  12. ZELNORM [Concomitant]

REACTIONS (5)
  - DYSPNOEA [None]
  - CHEST X-RAY ABNORMAL [None]
  - CHEST PAIN [None]
  - PULMONARY EMBOLISM [None]
  - ASTHMA [None]
